FAERS Safety Report 9737216 (Version 1)
Quarter: 2013Q4

REPORT INFORMATION
  Report Type: Spontaneous
  Country: US (occurrence: US)
  Receive Date: 20131206
  Receipt Date: 20131206
  Transmission Date: 20140711
  Serious: Yes (Other)
  Sender: FDA-Public Use
  Company Number: US-OTSUKA-US-2013-12285

PATIENT
  Sex: 0

DRUGS (1)
  1. SAMSCA [Suspect]
     Indication: PRODUCT USED FOR UNKNOWN INDICATION

REACTIONS (2)
  - Blood sodium decreased [Unknown]
  - Drug ineffective [Unknown]
